FAERS Safety Report 15099114 (Version 2)
Quarter: 2018Q4

REPORT INFORMATION
  Report Type: Spontaneous
  Country: GB (occurrence: GB)
  Receive Date: 20180702
  Receipt Date: 20181015
  Transmission Date: 20190204
  Serious: Yes (Hospitalization, Other)
  Sender: FDA-Public Use
  Company Number: GB-MYLANLABS-2018M1047149

PATIENT
  Age: 63 Year
  Sex: Male

DRUGS (4)
  1. HYDROXYCHLOROQUINE [Suspect]
     Active Substance: HYDROXYCHLOROQUINE
     Indication: ARTHRITIS
     Dosage: 400 MG, QD
  2. HYDROXYCHLOROQUINE [Suspect]
     Active Substance: HYDROXYCHLOROQUINE
     Indication: SERONEGATIVE ARTHRITIS
     Dosage: 200 MG, QD
     Route: 065
  3. NAPROXEN. [Concomitant]
     Active Substance: NAPROXEN
     Indication: PRODUCT USED FOR UNKNOWN INDICATION
     Dosage: UNK
  4. COCODAMOL [Concomitant]
     Active Substance: ACETAMINOPHEN\CODEINE PHOSPHATE
     Indication: PRODUCT USED FOR UNKNOWN INDICATION
     Dosage: UNK

REACTIONS (18)
  - Swelling of eyelid [Recovering/Resolving]
  - Rash [Recovering/Resolving]
  - Drug reaction with eosinophilia and systemic symptoms [Recovering/Resolving]
  - Cheilitis [Recovering/Resolving]
  - Erythema [Recovering/Resolving]
  - Oral discomfort [Recovering/Resolving]
  - Palpable purpura [Recovering/Resolving]
  - Skin reaction [Recovering/Resolving]
  - Leukocytosis [Recovered/Resolved]
  - Pyrexia [Recovering/Resolving]
  - Hypertension [Recovering/Resolving]
  - Hyponatraemia [Recovered/Resolved]
  - Skin discolouration [Recovering/Resolving]
  - Eosinophilia [Recovered/Resolved]
  - Periorbital oedema [Recovering/Resolving]
  - Scab [Recovering/Resolving]
  - Antinuclear antibody positive [Recovered/Resolved]
  - C-reactive protein increased [Recovering/Resolving]
